FAERS Safety Report 25926625 (Version 1)
Quarter: 2025Q4

REPORT INFORMATION
  Report Type: Spontaneous
  Country: US (occurrence: US)
  Receive Date: 20251015
  Receipt Date: 20251015
  Transmission Date: 20260117
  Serious: No
  Sender: PFIZER
  Company Number: US-PFIZER INC-202500202867

PATIENT
  Age: 86 Year
  Sex: Female

DRUGS (2)
  1. IBRANCE [Interacting]
     Active Substance: PALBOCICLIB
     Dosage: 100 MG, CYCLIC (TAKE 1 TABLET BY MOUTH DAILY ON DAYS 1-21 FOLLOWED BY 7 DAYS OFF)
     Route: 048
  2. FIORICET [Interacting]
     Active Substance: ACETAMINOPHEN\BUTALBITAL\CAFFEINE
     Dosage: UNK, AS NEEDED

REACTIONS (1)
  - Drug interaction [Not Recovered/Not Resolved]
